FAERS Safety Report 22643218 (Version 3)
Quarter: 2024Q1

REPORT INFORMATION
  Report Type: Spontaneous
  Country: CA (occurrence: CA)
  Receive Date: 20230627
  Receipt Date: 20240215
  Transmission Date: 20240409
  Serious: Yes (Other)
  Sender: FDA-Public Use
  Company Number: CA-CELLTRION INC.-2023CA000454

PATIENT

DRUGS (1)
  1. YUFLYMA [Suspect]
     Active Substance: ADALIMUMAB-AATY
     Indication: Colitis ulcerative
     Dosage: 40 MG, Q2WEEKS / 1 EVERY 2 WEEKS
     Route: 058
     Dates: start: 20220930

REACTIONS (5)
  - Constipation [Recovered/Resolved]
  - Haemorrhage [Recovered/Resolved]
  - Product availability issue [Recovered/Resolved]
  - Intentional product use issue [Recovered/Resolved]
  - Therapy interrupted [Recovered/Resolved]
